FAERS Safety Report 9618643 (Version 1)
Quarter: 2013Q4

REPORT INFORMATION
  Report Type: Spontaneous
  Country: US (occurrence: US)
  Receive Date: 20131014
  Receipt Date: 20131014
  Transmission Date: 20140711
  Serious: No
  Sender: FDA-Public Use
  Company Number: US-PFIZER INC-2013292785

PATIENT
  Sex: 0

DRUGS (6)
  1. NEURONTIN [Suspect]
     Dosage: UNK
  2. ZOLOFT [Suspect]
     Dosage: 150 MG, UNK
  3. LISINOPRIL W/HYDROCHLOROTHIAZIDE [Suspect]
     Indication: BLOOD PRESSURE
     Dosage: [LISINOPRIL 20MG]/ [HYDROCHLOROTHIAZIDE 12.5MG]
  4. SEROQUEL [Suspect]
     Dosage: 300 MG, UNK
  5. WELLBUTRIN [Suspect]
     Dosage: 200 MG, DAILY
  6. PENICILLIN G [Suspect]

REACTIONS (1)
  - Drug hypersensitivity [Unknown]
